FAERS Safety Report 18474897 (Version 1)
Quarter: 2020Q4

REPORT INFORMATION
  Report Type: Spontaneous
  Country: BR (occurrence: BR)
  Receive Date: 20201106
  Receipt Date: 20201106
  Transmission Date: 20210114
  Serious: Yes (Other)
  Sender: FDA-Public Use
  Company Number: BR-ASTRAZENECA-2020SF45520

PATIENT
  Age: 52 Year
  Sex: Female
  Weight: 72 kg

DRUGS (6)
  1. FLAXSEED OIL [LINUM USITATISSIMUM OIL] [Concomitant]
     Indication: BLOOD CHOLESTEROL INCREASED
     Dosage: 2 DOSAGE FORM, 1/DAY
     Route: 048
  2. DIPYRONE [Concomitant]
     Active Substance: DIPYRONE
     Indication: HEADACHE
     Dosage: UNK, AS NEEDED INTERMITTENT
     Route: 048
  3. OMEPRAZOLE. [Concomitant]
     Active Substance: OMEPRAZOLE
     Indication: GASTRIC DISORDER
     Dosage: UNK
     Route: 048
     Dates: start: 2013
  4. VITAMIN C [Concomitant]
     Active Substance: ASCORBIC ACID
     Indication: PRODUCT USED FOR UNKNOWN INDICATION
     Dosage: UNK
  5. ZOMIG [Suspect]
     Active Substance: ZOLMITRIPTAN
     Indication: MIGRAINE
     Dosage: 2 DOSAGE FORM, 1/DAY
     Route: 048
  6. MAGNESIUM CHLORIDE. [Concomitant]
     Active Substance: MAGNESIUM CHLORIDE
     Indication: ARTHRALGIA
     Dosage: UNK, 2/DAY
     Route: 048

REACTIONS (4)
  - Drug ineffective [Unknown]
  - Vomiting [Unknown]
  - Haematochezia [Unknown]
  - Therapeutic response unexpected [Unknown]
